FAERS Safety Report 11883503 (Version 20)
Quarter: 2019Q2

REPORT INFORMATION
  Report Type: Report from Study
  Country: CA (occurrence: CA)
  Receive Date: 20151231
  Receipt Date: 20190403
  Transmission Date: 20190711
  Serious: Yes (Hospitalization, Other)
  Sender: FDA-Public Use
  Company Number: PHHY2012CA038761

PATIENT
  Age: 81 Year
  Sex: Female

DRUGS (7)
  1. SANDOSTATIN LAR DEPOT [Suspect]
     Active Substance: OCTREOTIDE ACETATE
     Indication: NEUROENDOCRINE TUMOUR
     Dosage: 30 MG, EVERY 4 WEEKS (QMO)
     Route: 030
     Dates: start: 20111017
  2. SANDOSTATIN [Suspect]
     Active Substance: OCTREOTIDE ACETATE
     Indication: CARCINOID SYNDROME
     Dosage: UNK UNK, BID
     Route: 058
     Dates: start: 20170605
  3. SANDOSTATIN LAR DEPOT [Suspect]
     Active Substance: OCTREOTIDE ACETATE
     Dosage: 30 MG, EVERY 4 WEEKS (QMO)
     Route: 030
     Dates: start: 20150324
  4. SANDOSTATIN LAR DEPOT [Suspect]
     Active Substance: OCTREOTIDE ACETATE
     Dosage: 30 MG, EVERY 4 WEEKS (QMO)
     Route: 030
     Dates: start: 20140325
  5. SANDOSTATIN LAR DEPOT [Suspect]
     Active Substance: OCTREOTIDE ACETATE
     Dosage: 30 MG, EVERY 3 WEEKS
     Route: 030
     Dates: start: 20140910
  6. CODEINE PHOSPHATE [Suspect]
     Active Substance: CODEINE PHOSPHATE
     Indication: PRODUCT USED FOR UNKNOWN INDICATION
     Route: 065
  7. AMOXICILLIN. [Concomitant]
     Active Substance: AMOXICILLIN
     Indication: PRODUCT USED FOR UNKNOWN INDICATION
     Dosage: UNK
     Route: 065

REACTIONS (20)
  - Pelvic fracture [Unknown]
  - Diverticulitis [Unknown]
  - Memory impairment [Unknown]
  - Body temperature decreased [Unknown]
  - Diarrhoea [Unknown]
  - Fall [Unknown]
  - Dyspnoea [Unknown]
  - Blood pressure diastolic decreased [Unknown]
  - Hypertension [Unknown]
  - Blood test abnormal [Unknown]
  - Fatigue [Unknown]
  - Inappropriate schedule of product administration [Unknown]
  - Lung disorder [Unknown]
  - Pneumonia [Unknown]
  - Haemorrhage [Unknown]
  - Cough [Unknown]
  - Urine analysis abnormal [Unknown]
  - Blood pressure abnormal [Unknown]
  - Nausea [Unknown]
  - Nasopharyngitis [Unknown]

NARRATIVE: CASE EVENT DATE: 20151221
